FAERS Safety Report 5753814-X (Version None)
Quarter: 2008Q2

REPORT INFORMATION
  Report Type: 
  Country: None (occurrence: None)
  Receive Date: 20080530
  Receipt Date: 20080523
  Transmission Date: 20081010
  Serious: Yes (Death, Life-Threatening)
  Sender: FDA-Public Use
  Company Number: AU-MERCK-0805AUS00195

PATIENT
  Age: 73 Year
  Sex: Female

DRUGS (1)
  1. NOROXIN [Suspect]
     Indication: URINARY TRACT DISORDER
     Route: 048
     Dates: start: 20060719, end: 20060726

REACTIONS (1)
  - HEPATIC FAILURE [None]
